FAERS Safety Report 8273507-7 (Version None)
Quarter: 2012Q2

REPORT INFORMATION
  Report Type: 
  Country: None (occurrence: None)
  Receive Date: 20120409
  Receipt Date: 20120409
  Transmission Date: 20120825
  Serious: Yes (Other)
  Sender: FDA-Public Use
  Company Number: None

PATIENT
  Sex: Female

DRUGS (3)
  1. COPAXONE [Suspect]
  2. COPAXONE [Suspect]
     Indication: MULTIPLE SCLEROSIS
     Dosage: 20 MG ONCE DAILY SQ
     Route: 058
     Dates: start: 20120405
  3. COPAXONE [Suspect]
     Indication: MULTIPLE SCLEROSIS
     Dosage: 20 MG ONCE DAILY SQ
     Route: 058
     Dates: start: 20080328

REACTIONS (5)
  - DIARRHOEA [None]
  - LYMPHADENOPATHY [None]
  - MICTURITION URGENCY [None]
  - FLUSHING [None]
  - ABDOMINAL DISCOMFORT [None]
